FAERS Safety Report 20908879 (Version 1)
Quarter: 2022Q2

REPORT INFORMATION
  Report Type: Spontaneous
  Country: US (occurrence: US)
  Receive Date: 20220603
  Receipt Date: 20220603
  Transmission Date: 20220720
  Serious: No
  Sender: FDA-Public Use
  Company Number: US-BRISTOL-MYERS SQUIBB COMPANY-2022-034969

PATIENT
  Age: 64 Year
  Sex: Female
  Weight: 81.6 kg

DRUGS (2)
  1. ORENCIA [Suspect]
     Active Substance: ABATACEPT
     Indication: Rheumatoid arthritis
     Dosage: DOSE : ONE;     FREQ : 750 MG WEEKS 0,2,4 THEN EVERY 4 WEEKS
     Route: 042
     Dates: start: 20220505
  2. ORENCIA [Suspect]
     Active Substance: ABATACEPT
     Route: 042

REACTIONS (2)
  - Poor venous access [Unknown]
  - Infusion site extravasation [Unknown]

NARRATIVE: CASE EVENT DATE: 20220505
